FAERS Safety Report 11245950 (Version 1)
Quarter: 2015Q3

REPORT INFORMATION
  Report Type: Spontaneous
  Country: DE (occurrence: GB)
  Receive Date: 20150708
  Receipt Date: 20150708
  Transmission Date: 20151125
  Serious: Yes (Other)
  Sender: FDA-Public Use
  Company Number: DE-AUROBINDO-AUR-APL-2015-05798

PATIENT

DRUGS (2)
  1. OLANZAPINE. [Suspect]
     Active Substance: OLANZAPINE
     Indication: SCHIZOPHRENIA
     Dosage: UNK MG, UNK
     Route: 065
  2. OLANZAPINE MILPHARM TABLETS 20 MG [Suspect]
     Active Substance: OLANZAPINE
     Indication: WEIGHT INCREASED
     Dosage: START DATE : IN LAST YEAR
     Route: 048
     Dates: start: 2014

REACTIONS (5)
  - Musculoskeletal stiffness [Unknown]
  - Schizophrenia [Unknown]
  - Drug ineffective [Unknown]
  - Off label use [Unknown]
  - Drug administration error [Unknown]
